FAERS Safety Report 13251403 (Version 1)
Quarter: 2017Q1

REPORT INFORMATION
  Report Type: Spontaneous
  Country: DE (occurrence: PL)
  Receive Date: 20170220
  Receipt Date: 20170220
  Transmission Date: 20170428
  Serious: Yes (Other)
  Sender: FDA-Public Use
  Company Number: DE-SUN PHARMACEUTICAL INDUSTRIES LTD-2017RR-133652

PATIENT
  Age: 70 Year
  Sex: Female

DRUGS (14)
  1. VINCRISTINE [Suspect]
     Active Substance: VINCRISTINE
     Indication: PRIMITIVE NEUROECTODERMAL TUMOUR
  2. VINCRISTINE [Suspect]
     Active Substance: VINCRISTINE
     Indication: EWING^S SARCOMA
     Dosage: 1.5 MG/M2, 1 DAY EVERY 3 WEEKS
     Route: 065
  3. CISPLATIN. [Suspect]
     Active Substance: CISPLATIN
     Indication: GALLBLADDER ADENOCARCINOMA
     Dosage: 25 MG/M2
     Route: 065
  4. MESNA. [Suspect]
     Active Substance: MESNA
     Indication: EWING^S SARCOMA
     Dosage: 720 MG/M2, 5 DAYS EVERY 3 WEEKS
     Route: 065
  5. IFOSAMIDE [Suspect]
     Active Substance: IFOSFAMIDE
     Indication: PRIMITIVE NEUROECTODERMAL TUMOUR
  6. DOXORUBICIN [Suspect]
     Active Substance: DOXORUBICIN
     Indication: EWING^S SARCOMA
     Dosage: 75 MG/M2, 1 DAY EVERY 3 WEEKS
     Route: 065
  7. CYCLOPHOSPHAMIDE. [Suspect]
     Active Substance: CYCLOPHOSPHAMIDE
     Indication: PRIMITIVE NEUROECTODERMAL TUMOUR
  8. ETOPOSIDE. [Suspect]
     Active Substance: ETOPOSIDE
     Indication: EWING^S SARCOMA
     Dosage: 100 MG/M2, 5 DAYS EVERY 3 WEEKS
     Route: 065
  9. ETOPOSIDE. [Suspect]
     Active Substance: ETOPOSIDE
     Indication: PRIMITIVE NEUROECTODERMAL TUMOUR
  10. MESNA. [Suspect]
     Active Substance: MESNA
     Indication: PRIMITIVE NEUROECTODERMAL TUMOUR
  11. CYCLOPHOSPHAMIDE. [Suspect]
     Active Substance: CYCLOPHOSPHAMIDE
     Indication: EWING^S SARCOMA
     Dosage: 1200 MG/M2, 1 DAY EVERY 3 WEEKS
     Route: 065
  12. GEMCITABINE [Suspect]
     Active Substance: GEMCITABINE\GEMCITABINE HYDROCHLORIDE
     Indication: GALLBLADDER ADENOCARCINOMA
     Dosage: 1000 MG/M2
     Route: 065
  13. DOXORUBICIN [Suspect]
     Active Substance: DOXORUBICIN
     Indication: PRIMITIVE NEUROECTODERMAL TUMOUR
  14. IFOSAMIDE [Suspect]
     Active Substance: IFOSFAMIDE
     Indication: EWING^S SARCOMA
     Dosage: 1800 MG/M2, 5 DAYS EVERY 3 WEEKS
     Route: 065

REACTIONS (2)
  - Drug ineffective [Unknown]
  - Drug effect incomplete [Unknown]
